FAERS Safety Report 9629301 (Version 1)
Quarter: 2013Q4

REPORT INFORMATION
  Report Type: Spontaneous
  Country: US (occurrence: US)
  Receive Date: 20131017
  Receipt Date: 20131017
  Transmission Date: 20140711
  Serious: No
  Sender: FDA-Public Use
  Company Number: US-ASTRAZENECA-2013SE64487

PATIENT
  Age: 66 Year
  Sex: Female

DRUGS (5)
  1. METOPROLOL [Suspect]
     Route: 065
  2. CRESTOR [Suspect]
     Indication: BLOOD CHOLESTEROL ABNORMAL
     Route: 048
  3. PLAVIX [Concomitant]
  4. COZAR [Concomitant]
  5. ZETIA [Concomitant]

REACTIONS (4)
  - Pain [Recovered/Resolved]
  - Abdominal pain upper [Recovered/Resolved]
  - Myalgia [Recovered/Resolved]
  - Gastrointestinal pain [Recovered/Resolved]
